FAERS Safety Report 20361978 (Version 3)
Quarter: 2022Q1

REPORT INFORMATION
  Report Type: Spontaneous
  Country: JP (occurrence: JP)
  Receive Date: 20220121
  Receipt Date: 20220208
  Transmission Date: 20220424
  Serious: Yes (Hospitalization, Other)
  Sender: FDA-Public Use
  Company Number: JP-TAKEDA-2022TJP005508

PATIENT
  Age: 70 Year
  Sex: Male
  Weight: 79 kg

DRUGS (4)
  1. LEUPLIN [Suspect]
     Active Substance: LEUPROLIDE ACETATE
     Indication: Prostate cancer
     Dosage: 3.75 MILLIGRAM
     Route: 065
  2. GLIMEPIRIDE [Concomitant]
     Active Substance: GLIMEPIRIDE
     Indication: Diabetes mellitus
     Dosage: 1 MILLIGRAM
     Route: 065
  3. PIOGLITAZONE [Concomitant]
     Active Substance: PIOGLITAZONE
     Indication: Diabetes mellitus
     Dosage: 15 MILLIGRAM
     Route: 065
  4. SITAGLIPTIN PHOSPHATE [Concomitant]
     Active Substance: SITAGLIPTIN PHOSPHATE
     Indication: Diabetes mellitus
     Dosage: 100 MILLIGRAM
     Route: 065

REACTIONS (3)
  - Diabetes mellitus [Recovering/Resolving]
  - Weight decreased [Unknown]
  - Thirst [Unknown]
